FAERS Safety Report 8154627-4 (Version None)
Quarter: 2012Q1

REPORT INFORMATION
  Report Type: 
  Country: None (occurrence: None)
  Receive Date: 20120221
  Receipt Date: 20120217
  Transmission Date: 20120608
  Serious: Yes (Death, Other)
  Sender: FDA-Public Use
  Company Number: PHHY2012GB014116

PATIENT
  Age: 41 Year
  Sex: Male

DRUGS (9)
  1. AZATHIOPRINE [Suspect]
     Dosage: 2.5 MG/KG, UNK
  2. VITAMIN D [Concomitant]
  3. MESALAMINE [Concomitant]
     Dosage: 2.4 G, UNK
  4. VITAMIN B-12 [Concomitant]
  5. PREDNISOLONE [Suspect]
     Indication: CROHN'S DISEASE
     Dosage: 15 MG, FROM LAST 15 YEARS
  6. AZATHIOPRINE [Suspect]
     Indication: CROHN'S DISEASE
     Dosage: FOR 5-6 YEARS
  7. CALCIUM [Concomitant]
  8. METHOTREXATE [Concomitant]
     Indication: CROHN'S DISEASE
  9. INFLIXIMAB [Concomitant]
     Indication: CROHN'S DISEASE
     Dates: start: 20020101

REACTIONS (8)
  - LEIOMYOSARCOMA [None]
  - INTESTINAL PERFORATION [None]
  - METASTASES TO LUNG [None]
  - GASTROINTESTINAL HAEMORRHAGE [None]
  - RENAL FAILURE ACUTE [None]
  - NEUTROPENIC SEPSIS [None]
  - DEATH [None]
  - OEDEMA PERIPHERAL [None]
